FAERS Safety Report 14433801 (Version 1)
Quarter: 2018Q1

REPORT INFORMATION
  Report Type: Report from Study
  Country: US (occurrence: US)
  Receive Date: 20180124
  Receipt Date: 20180124
  Transmission Date: 20180509
  Serious: Yes (Hospitalization, Other)
  Sender: FDA-Public Use
  Company Number: US-ACTELION-A-US2017-161623

PATIENT
  Age: 66 Year
  Sex: Female

DRUGS (11)
  1. DIGOX [Concomitant]
     Active Substance: DIGOXIN
  2. ESCITALOPRAM [Concomitant]
     Active Substance: ESCITALOPRAM OXALATE
  3. OPSUMIT [Suspect]
     Active Substance: MACITENTAN
     Indication: PULMONARY HYPERTENSION
     Dosage: 10 MG, QD
     Route: 048
  4. TADALAFIL [Concomitant]
     Active Substance: TADALAFIL
  5. NITROFURANTOIN. [Concomitant]
     Active Substance: NITROFURANTOIN
  6. TRAMADOL. [Concomitant]
     Active Substance: TRAMADOL
  7. DICLOFENAC [Concomitant]
     Active Substance: DICLOFENAC
  8. SPIRONOLACTONE. [Concomitant]
     Active Substance: SPIRONOLACTONE
  9. PROAIR HFA [Concomitant]
     Active Substance: ALBUTEROL SULFATE
  10. BUTALBITAL APAP CAFFEINE [Concomitant]
  11. AMBRISENTAN [Concomitant]
     Active Substance: AMBRISENTAN

REACTIONS (5)
  - Pulmonary haemorrhage [Unknown]
  - Headache [Unknown]
  - Haemoptysis [Recovered/Resolved]
  - Fatigue [Unknown]
  - Nausea [Unknown]
